FAERS Safety Report 25162989 (Version 1)
Quarter: 2025Q2

REPORT INFORMATION
  Report Type: Spontaneous
  Country: DE (occurrence: DE)
  Receive Date: 20250404
  Receipt Date: 20250404
  Transmission Date: 20250716
  Serious: Yes (Other)
  Sender: NOVARTIS
  Company Number: None

PATIENT
  Sex: Male

DRUGS (5)
  1. LEQVIO [Suspect]
     Active Substance: INCLISIRAN SODIUM
     Indication: Type II hyperlipidaemia
     Route: 058
     Dates: start: 20220914, end: 20220914
  2. LEQVIO [Suspect]
     Active Substance: INCLISIRAN SODIUM
     Route: 058
     Dates: start: 20221214
  3. EZETIMIBE [Concomitant]
     Active Substance: EZETIMIBE
     Indication: Product used for unknown indication
     Route: 065
  4. BEMPEDOIC ACID\EZETIMIBE [Concomitant]
     Active Substance: BEMPEDOIC ACID\EZETIMIBE
     Indication: Product used for unknown indication
     Route: 065
     Dates: start: 202312
  5. COLCHICINE [Concomitant]
     Active Substance: COLCHICINE
     Indication: Product used for unknown indication
     Route: 065
     Dates: start: 2024

REACTIONS (7)
  - Cardiac failure [Unknown]
  - Pericarditis [Unknown]
  - Rhabdomyolysis [Unknown]
  - Dilated cardiomyopathy [Unknown]
  - Condition aggravated [Unknown]
  - Blood creatine phosphokinase increased [Unknown]
  - Ejection fraction decreased [Unknown]

NARRATIVE: CASE EVENT DATE: 20230201
